FAERS Safety Report 15016735 (Version 1)
Quarter: 2018Q2

REPORT INFORMATION
  Report Type: Spontaneous
  Country: US (occurrence: US)
  Receive Date: 20180523
  Receipt Date: 20180523
  Transmission Date: 20180711
  Serious: Yes (Other)
  Sender: FDA-Public Use
  Company Number: None

PATIENT
  Age: 65 Year
  Sex: Female

DRUGS (1)
  1. ADALIMUMAB [Suspect]
     Active Substance: ADALIMUMAB
     Dates: start: 20180127

REACTIONS (3)
  - Rash [None]
  - Lupus-like syndrome [None]
  - Butterfly rash [None]

NARRATIVE: CASE EVENT DATE: 20180127
